FAERS Safety Report 4482104-0 (Version None)
Quarter: 2004Q4

REPORT INFORMATION
  Report Type: 
  Country: None (occurrence: None)
  Receive Date: 20041020
  Receipt Date: 20041007
  Transmission Date: 20050328
  Serious: Yes (Death)
  Sender: FDA-Public Use
  Company Number: 2004063776

PATIENT
  Age: 43 Year
  Sex: Female
  Weight: 57 kg

DRUGS (3)
  1. HYDROXYZINE HCL [Suspect]
     Indication: ILL-DEFINED DISORDER
     Dosage: ORAL
     Route: 048
  2. THIORIDAZINE HCL [Concomitant]
  3. IMIPRAMINE [Concomitant]

REACTIONS (4)
  - COMPLETED SUICIDE [None]
  - INTENTIONAL OVERDOSE [None]
  - LUNG DISORDER [None]
  - VOMITING [None]
